FAERS Safety Report 23989201 (Version 1)
Quarter: 2024Q2

REPORT INFORMATION
  Report Type: Spontaneous
  Country: US (occurrence: US)
  Receive Date: 20240619
  Receipt Date: 20240619
  Transmission Date: 20240716
  Serious: Yes (Other)
  Sender: FDA-Public Use
  Company Number: US-SUN PHARMACEUTICAL INDUSTRIES LTD-2024R1-451348

PATIENT
  Age: 70 Year
  Sex: Female

DRUGS (4)
  1. TACROLIMUS [Suspect]
     Active Substance: TACROLIMUS
     Indication: Transient acantholytic dermatosis
     Dosage: UNK
     Route: 065
  2. MONTELUKAST [Suspect]
     Active Substance: MONTELUKAST SODIUM
     Indication: Transient acantholytic dermatosis
     Dosage: UNK
     Route: 065
  3. TRAZODONE [Suspect]
     Active Substance: TRAZODONE HYDROCHLORIDE
     Indication: Transient acantholytic dermatosis
     Dosage: UNK
     Route: 065
  4. LORATADINE [Suspect]
     Active Substance: LORATADINE
     Indication: Transient acantholytic dermatosis
     Dosage: UNK
     Route: 065

REACTIONS (1)
  - Treatment failure [Unknown]
